FAERS Safety Report 4744216-3 (Version None)
Quarter: 2005Q3

REPORT INFORMATION
  Report Type: 
  Country: None (occurrence: None)
  Receive Date: 20050812
  Receipt Date: 20030505
  Transmission Date: 20060218
  Serious: Yes (Hospitalization)
  Sender: FDA-Public Use
  Company Number: PHBS2003SE04617

PATIENT
  Age: 82 Year
  Sex: Female

DRUGS (6)
  1. ZOMETA [Suspect]
     Indication: METASTASES TO BONE
     Dosage: 4 MG, ONCE/SINGLE
     Dates: start: 20030208, end: 20030208
  2. ALVEDON [Concomitant]
     Dosage: 500 MG/D
  3. BETAPRED [Concomitant]
     Dosage: 0.5 MG/D
  4. TAMOXIFEN CITRATE [Concomitant]
     Dosage: 40 MG/D
  5. DOLCONTIN [Concomitant]
     Dosage: 10 MG/D
  6. LANSOPRAZOLE [Concomitant]
     Dosage: 15 MG/D

REACTIONS (2)
  - EPILEPSY [None]
  - HYPOCALCAEMIA [None]
